FAERS Safety Report 24449743 (Version 1)
Quarter: 2024Q4

REPORT INFORMATION
  Report Type: Spontaneous
  Country: US (occurrence: None)
  Receive Date: 20241016
  Receipt Date: 20241016
  Transmission Date: 20250115
  Serious: Yes (Life-Threatening)
  Sender: Public
  Company Number: None

PATIENT
  Age: 68 Year
  Sex: Male

DRUGS (2)
  1. CEFEPIME HYDROCHLORIDE [Suspect]
     Active Substance: CEFEPIME HYDROCHLORIDE
     Indication: Osteomyelitis
     Dates: start: 20240523, end: 20240607
  2. DAPTOMYCIN [Concomitant]
     Active Substance: DAPTOMYCIN

REACTIONS (4)
  - Confusional state [None]
  - Dysphemia [None]
  - Tremor [None]
  - Loss of consciousness [None]

NARRATIVE: CASE EVENT DATE: 20240606
